FAERS Safety Report 17599373 (Version 1)
Quarter: 2020Q1

REPORT INFORMATION
  Report Type: Report from Study
  Country: US (occurrence: US)
  Receive Date: 20200330
  Receipt Date: 20200330
  Transmission Date: 20200409
  Serious: Yes (Hospitalization)
  Sender: FDA-Public Use
  Company Number: US-MYLANLABS-2020M1033420

PATIENT
  Age: 46 Year
  Sex: Female

DRUGS (6)
  1. AMPICILLIN [Suspect]
     Active Substance: AMPICILLIN
     Indication: IMMUNE TOLERANCE INDUCTION
     Dosage: CONTINUOUS IV INFUSION;
     Route: 042
  2. AMPICILLIN [Suspect]
     Active Substance: AMPICILLIN
     Dosage: CONTINUOUS IV INFUSION; INFUSION BAG..
     Route: 042
  3. AMPICILLIN [Suspect]
     Active Substance: AMPICILLIN
     Dosage: CONTINUOUS IV INFUSION; INFUSION..
     Route: 042
  4. NORMAL SALINE [Concomitant]
     Active Substance: SODIUM CHLORIDE
     Indication: DRUG THERAPY
     Dosage: CONTINUOUS INTRAVENOUS INFUSION; USED FOR RECONSTITUTION OF AMPICILLIN
     Route: 042
  5. AMPICILLIN [Suspect]
     Active Substance: AMPICILLIN
     Dosage: CONTINUOUS IV INFUSION; INFUSION BAG A..
     Route: 042
  6. AMPICILLIN [Suspect]
     Active Substance: AMPICILLIN
     Dosage: CONTINUOUS IV INFUSION;THE AMPICILLIN IN INFUSION..
     Route: 042

REACTIONS (3)
  - Urticaria [Unknown]
  - Off label use [Unknown]
  - Rash [Unknown]
